FAERS Safety Report 6813884-4 (Version None)
Quarter: 2010Q3

REPORT INFORMATION
  Report Type: 
  Country: None (occurrence: None)
  Receive Date: 20100702
  Receipt Date: 20100623
  Transmission Date: 20110219
  Serious: Yes (Hospitalization)
  Sender: FDA-Public Use
  Company Number: US-BIOGENIDEC-2010BI021793

PATIENT
  Age: 31 Year
  Sex: Female

DRUGS (2)
  1. AVONEX [Suspect]
     Indication: MULTIPLE SCLEROSIS
     Route: 030
     Dates: start: 20040401
  2. NOVANTRONE [Concomitant]

REACTIONS (3)
  - AORTIC VALVE INCOMPETENCE [None]
  - HYPOTHYROIDISM [None]
  - MULTIPLE SCLEROSIS RELAPSE [None]
